FAERS Safety Report 12434506 (Version 1)
Quarter: 2016Q2

REPORT INFORMATION
  Report Type: Spontaneous
  Country: US (occurrence: US)
  Receive Date: 20160603
  Receipt Date: 20160603
  Transmission Date: 20160815
  Serious: Yes (Other)
  Sender: FDA-Public Use
  Company Number: US-MDT-ADR-2016-00411

PATIENT
  Age: 60 Year
  Sex: Male

DRUGS (11)
  1. VITAMIN D [Suspect]
     Active Substance: CHOLECALCIFEROL
     Route: 065
  2. ORAL MEDICATIONS [Suspect]
     Active Substance: UNSPECIFIED INGREDIENT
     Route: 048
  3. FISH OIL [Suspect]
     Active Substance: FISH OIL
     Route: 065
  4. AMPYRA [Suspect]
     Active Substance: DALFAMPRIDINE
     Route: 065
  5. GILENYA [Suspect]
     Active Substance: FINGOLIMOD HYDROCHLORIDE
     Route: 065
  6. MAGNESIUM CITRATE. [Suspect]
     Active Substance: MAGNESIUM CITRATE
     Route: 065
  7. MULTIVITAMIN [Suspect]
     Active Substance: VITAMINS
     Route: 065
  8. NEURONTIN [Suspect]
     Active Substance: GABAPENTIN
     Route: 065
  9. CELEXA [Suspect]
     Active Substance: CITALOPRAM HYDROBROMIDE
     Route: 065
  10. LEVOTHYROXINE. [Suspect]
     Active Substance: LEVOTHYROXINE
     Route: 065
  11. BACLOFEN. [Suspect]
     Active Substance: BACLOFEN
     Dosage: 525.1 MCG/DAY
     Route: 037

REACTIONS (9)
  - Feeling abnormal [Unknown]
  - Urinary tract infection [Unknown]
  - Pruritus [Unknown]
  - Muscle contractions involuntary [Unknown]
  - Paraesthesia [Unknown]
  - Muscle atrophy [Unknown]
  - Influenza [Unknown]
  - Movement disorder [Unknown]
  - No therapeutic response [Unknown]

NARRATIVE: CASE EVENT DATE: 20160224
